FAERS Safety Report 7868203-1 (Version None)
Quarter: 2011Q4

REPORT INFORMATION
  Report Type: 
  Country: None (occurrence: None)
  Receive Date: 20111028
  Receipt Date: 20111017
  Transmission Date: 20120403
  Serious: Yes (Death)
  Sender: FDA-Public Use
  Company Number: GB-ROCHE-1004933

PATIENT
  Sex: Male
  Weight: 72.2 kg

DRUGS (8)
  1. AVASTIN [Suspect]
     Indication: GASTRIC CANCER
     Dosage: DATE OF RECENT DOSE 30 SEP 2011, THERAPY STOPPED.
     Route: 042
     Dates: start: 20110909
  2. ATORVASTATIN CALCIUM [Concomitant]
     Route: 048
  3. XELODA [Suspect]
     Indication: GASTRIC CANCER
     Dosage: DATE OF RECENT DOSE 30 SEP 2011, THERAPY STOPPED.
     Route: 048
     Dates: start: 20110909
  4. METFORMIN [Concomitant]
     Route: 048
  5. AMLODIPINE [Concomitant]
     Dosage: TREATMENT STOPPED.
     Route: 048
     Dates: end: 20111003
  6. CISPLATIN [Suspect]
     Indication: GASTRIC CANCER
     Dosage: DATE OF RECENT DOSE 30 SEP 2011, THERAPY STOPPED.
     Route: 042
     Dates: start: 20110909
  7. EPIRUBICIN HYDROCHLORIDE [Suspect]
     Indication: GASTRIC CANCER
     Route: 042
     Dates: start: 20110909
  8. ATENOLOL [Concomitant]
     Route: 048
     Dates: end: 20111003

REACTIONS (2)
  - NEUTROPENIC SEPSIS [None]
  - DIARRHOEA [None]
